FAERS Safety Report 6932223-1 (Version None)
Quarter: 2010Q3

REPORT INFORMATION
  Report Type: 
  Country: None (occurrence: None)
  Receive Date: 20100819
  Receipt Date: 20100810
  Transmission Date: 20110219
  Serious: Yes (Life-Threatening)
  Sender: FDA-Public Use
  Company Number: JP-EISAI INC.-E2090-01200-SPO-JP

PATIENT
  Sex: Male

DRUGS (26)
  1. EXCEGRAN [Suspect]
     Route: 048
     Dates: start: 20100425, end: 20100511
  2. PROHEPARUM [Concomitant]
     Route: 048
  3. CERNILTON [Concomitant]
     Route: 048
  4. GLYCYRON [Concomitant]
  5. ALDACTONE [Concomitant]
     Route: 048
  6. ZYRTEC [Concomitant]
     Route: 048
  7. URIEF [Concomitant]
     Route: 048
  8. HERBESSER R [Concomitant]
     Route: 048
  9. MEXITIL [Concomitant]
  10. DIOVAN [Concomitant]
     Route: 048
  11. LANSOPRAZOLE [Concomitant]
  12. SOLDACTONE [Concomitant]
     Route: 048
  13. LASIX [Concomitant]
  14. MANNIGEN [Concomitant]
  15. HANP [Concomitant]
  16. PROPOFOL [Concomitant]
  17. GLUCONSAN K [Concomitant]
     Route: 048
  18. GASMOTIN [Concomitant]
     Route: 048
  19. ULCERLMIN [Concomitant]
     Route: 048
  20. DAIKENCHUTO [Concomitant]
     Route: 048
  21. CEFTAZIDIME [Concomitant]
  22. VANCOMYCIN [Concomitant]
  23. CEFAPICAL [Concomitant]
  24. MIDAZOLAM HCL [Concomitant]
  25. RECOMODULIM [Concomitant]
  26. PHENYTOIN SODIUM [Concomitant]

REACTIONS (1)
  - INTERSTITIAL LUNG DISEASE [None]
